FAERS Safety Report 10074006 (Version 1)
Quarter: 2014Q2

REPORT INFORMATION
  Report Type: Spontaneous
  Country: US (occurrence: US)
  Receive Date: 20140411
  Receipt Date: 20140411
  Transmission Date: 20141212
  Serious: No
  Sender: FDA-Public Use
  Company Number: US-SA-2013SA125214

PATIENT
  Age: 61 Year
  Sex: Female

DRUGS (2)
  1. ALLEGRA D [Suspect]
     Indication: HYPERSENSITIVITY
     Dosage: TAKEN IN PAST
     Route: 048
  2. ALLEGRA D [Suspect]
     Indication: NASAL CONGESTION
     Dosage: TAKEN IN PAST
     Route: 048

REACTIONS (1)
  - Dysphagia [Recovered/Resolved]
